FAERS Safety Report 19636085 (Version 2)
Quarter: 2022Q1

REPORT INFORMATION
  Report Type: Spontaneous
  Country: PL (occurrence: PL)
  Receive Date: 20210730
  Receipt Date: 20220209
  Transmission Date: 20220423
  Serious: Yes (Death)
  Sender: FDA-Public Use
  Company Number: PL-EMA-DD-20210714-SHUKLA_V-112505

PATIENT
  Age: 64 Year
  Sex: Male

DRUGS (10)
  1. IBUPROFEN [Suspect]
     Active Substance: IBUPROFEN
     Indication: Analgesic therapy
     Dosage: 1800 MILLIGRAM,600 MG, TID
     Route: 065
  2. IBUPROFEN [Suspect]
     Active Substance: IBUPROFEN
     Indication: Pain
     Dosage: 800 MILLIGRAM, TID
     Route: 065
  3. MORPHINE [Suspect]
     Active Substance: MORPHINE
     Indication: Pain
     Dosage: 200 MILLIGRAM, DAILY,TITRATED UP TO 200 MG PER DAY
     Route: 042
  4. MORPHINE [Suspect]
     Active Substance: MORPHINE
     Route: 042
  5. PREDNISONE [Suspect]
     Active Substance: PREDNISONE
     Indication: Pain
     Dosage: 40 MILLIGRAM, DAILY
     Route: 065
  6. PREDNISONE [Suspect]
     Active Substance: PREDNISONE
     Route: 065
  7. ZOLEDRONIC ACID [Concomitant]
     Active Substance: ZOLEDRONIC ACID
     Indication: Product used for unknown indication
     Dosage: 4 MG, UNK
     Route: 042
  8. ERLOTINIB [Concomitant]
     Active Substance: ERLOTINIB
     Dosage: ()
     Route: 065
  9. ERLOTINIB [Concomitant]
     Active Substance: ERLOTINIB
     Indication: Metastases to central nervous system
     Dosage: ()
     Route: 065
  10. FENTANYL - TRANSDERMAL PATCH [Concomitant]
     Indication: Pain
     Dosage: PATCH (50 UG/H) ()
     Route: 065

REACTIONS (4)
  - Drug ineffective [Fatal]
  - Disease progression [Fatal]
  - Drug tolerance increased [Fatal]
  - Off label use [Fatal]
